FAERS Safety Report 5849186-2 (Version None)
Quarter: 2008Q3

REPORT INFORMATION
  Report Type: 
  Country: None (occurrence: None)
  Receive Date: 20080731
  Receipt Date: 20080527
  Transmission Date: 20090109
  Serious: No
  Sender: FDA-Public Use
  Company Number: US200806000622

PATIENT
  Age: 62 Year
  Sex: Female
  Weight: 59.9 kg

DRUGS (15)
  1. BYETTA [Suspect]
     Indication: TYPE 2 DIABETES MELLITUS
     Dosage: 5 UG, 2/D, SUBCUTANEOUS : 10 UG, 2/D, SUBCUTANEOUS
     Route: 058
     Dates: start: 20070101, end: 20080101
  2. BYETTA [Suspect]
     Indication: TYPE 2 DIABETES MELLITUS
     Dosage: 5 UG, 2/D, SUBCUTANEOUS : 10 UG, 2/D, SUBCUTANEOUS
     Route: 058
     Dates: start: 20080101
  3. EXENATIDE PEN, DISPOSABLE DEVICE (EXENATIDE PEN) PEN,DISPOSABLE [Concomitant]
  4. GLUCOPHAGE [Concomitant]
  5. PRANDIN [Concomitant]
  6. PROZAC [Concomitant]
  7. DIOVAN (HYDROCHLOROTHIAZIDE, VALSARTAN) [Concomitant]
  8. ATENOLOL [Concomitant]
  9. SINGULAIR [Concomitant]
  10. FEXOFENADINE HCL [Concomitant]
  11. LIPITOR [Concomitant]
  12. NASONEX [Concomitant]
  13. ADVAIR DISKUS 100/50 [Concomitant]
  14. MULTIVITAMIN [Concomitant]
  15. ASPIRIN [Concomitant]

REACTIONS (1)
  - EYE LASER SURGERY [None]
